FAERS Safety Report 21743096 (Version 1)
Quarter: 2022Q4

REPORT INFORMATION
  Report Type: Report from Study
  Country: US (occurrence: US)
  Receive Date: 20221217
  Receipt Date: 20221217
  Transmission Date: 20230113
  Serious: Yes (Other)
  Sender: FDA-Public Use
  Company Number: US-ABBVIE-4240927

PATIENT
  Age: 66 Year
  Sex: Female

DRUGS (2)
  1. HUMIRA [Suspect]
     Active Substance: ADALIMUMAB
     Indication: Rheumatoid arthritis
     Dosage: CF
     Route: 058
  2. Covid-19 vaccine [Concomitant]
     Indication: COVID-19 immunisation
     Dosage: TIME INTERVAL: TOTAL: BOOSTER
     Route: 030

REACTIONS (1)
  - Oral surgery [Recovered/Resolved]

NARRATIVE: CASE EVENT DATE: 20221214
